FAERS Safety Report 17451825 (Version 2)
Quarter: 2020Q2

REPORT INFORMATION
  Report Type: Report from Study
  Country: IT (occurrence: IT)
  Receive Date: 20200224
  Receipt Date: 20200619
  Transmission Date: 20200713
  Serious: Yes (Other)
  Sender: FDA-Public Use
  Company Number: IT-TEVA-2020-IT-1190134

PATIENT
  Age: 70 Year
  Sex: Male

DRUGS (4)
  1. DEXAMETHASONE. [Concomitant]
     Active Substance: DEXAMETHASONE
     Indication: PREMEDICATION
     Dosage: ON THE DAY BEFORE PACLITAXEL INFUSION
     Route: 048
  2. DEXAMETHASONE. [Concomitant]
     Active Substance: DEXAMETHASONE
     Indication: PREMEDICATION
     Dosage: BEFORE PACLITAXEL INFUSION
     Route: 042
  3. CHLORPHENIRAMINE MALEATE. [Concomitant]
     Active Substance: CHLORPHENIRAMINE MALEATE
     Indication: PREMEDICATION
     Dosage: BEFORE PACLITAXEL INFUSION
     Route: 030
  4. PACLITAXEL. [Suspect]
     Active Substance: PACLITAXEL
     Indication: KAPOSI^S SARCOMA
     Dosage: THE PATIENT RECEIVED 2 INFUSIONS
     Route: 041

REACTIONS (3)
  - Allergic respiratory symptom [Unknown]
  - Drug hypersensitivity [Unknown]
  - Erythema [Unknown]
